FAERS Safety Report 9399598 (Version 1)
Quarter: 2013Q3

REPORT INFORMATION
  Report Type: Spontaneous
  Country: GB (occurrence: None)
  Receive Date: 20130710
  Receipt Date: 20130710
  Transmission Date: 20140515
  Serious: Yes (Other)
  Sender: FDA-Public Use
  Company Number: CL-503-2013

PATIENT
  Age: 46 Year
  Sex: Female
  Weight: 93.88 kg

DRUGS (1)
  1. METRONIDAZOLE [Suspect]
     Indication: TOOTH ABSCESS
     Route: 048
     Dates: start: 20130610, end: 20130614

REACTIONS (4)
  - Palpitations [None]
  - Dyspnoea [None]
  - Musculoskeletal stiffness [None]
  - Headache [None]
